FAERS Safety Report 6608699-6 (Version None)
Quarter: 2010Q1

REPORT INFORMATION
  Report Type: 
  Country: None (occurrence: None)
  Receive Date: 20100301
  Receipt Date: 20100226
  Transmission Date: 20100710
  Serious: Yes (Hospitalization)
  Sender: FDA-Public Use
  Company Number: US-CEPHALON-2010000981

PATIENT
  Sex: Male

DRUGS (5)
  1. NUVIGIL [Suspect]
     Route: 048
     Dates: start: 20090831, end: 20100202
  2. PROVIGIL [Concomitant]
     Route: 048
     Dates: start: 20080901, end: 20090831
  3. PROVIGIL [Concomitant]
     Route: 048
     Dates: start: 20100202
  4. CYMBALTA [Concomitant]
  5. ZYPREXA [Concomitant]

REACTIONS (4)
  - AGGRESSION [None]
  - DELUSION [None]
  - HALLUCINATION [None]
  - INSOMNIA [None]
